FAERS Safety Report 14221575 (Version 2)
Quarter: 2017Q4

REPORT INFORMATION
  Report Type: Spontaneous
  Country: US (occurrence: US)
  Receive Date: 20171123
  Receipt Date: 20171221
  Transmission Date: 20180321
  Serious: Yes (Hospitalization)
  Sender: FDA-Public Use
  Company Number: US-ELI_LILLY_AND_COMPANY-US201711007988

PATIENT
  Sex: Female

DRUGS (2)
  1. HUMATROPE [Suspect]
     Active Substance: SOMATROPIN
     Indication: HYPOPITUITARISM
     Dosage: 0.4 ML, DAILY
     Route: 058
     Dates: start: 1998
  2. DESMOPRESSIN [Concomitant]
     Active Substance: DESMOPRESSIN
     Indication: PRODUCT USED FOR UNKNOWN INDICATION
     Dosage: UNK, UNKNOWN
     Route: 065

REACTIONS (7)
  - Intentional product use issue [Unknown]
  - Fall [Unknown]
  - Tri-iodothyronine decreased [Unknown]
  - Overdose [Not Recovered/Not Resolved]
  - Femoral neck fracture [Recovering/Resolving]
  - Head injury [Unknown]
  - Euphoric mood [Not Recovered/Not Resolved]
